FAERS Safety Report 5335275-8 (Version None)
Quarter: 2007Q2

REPORT INFORMATION
  Report Type: 
  Country: None (occurrence: None)
  Receive Date: 20070525
  Receipt Date: 20070515
  Transmission Date: 20071010
  Serious: Yes (Other)
  Sender: FDA-Public Use
  Company Number: IE-PFIZER INC-2007025334

PATIENT
  Age: 59 Year
  Sex: Male

DRUGS (9)
  1. LYRICA [Suspect]
     Indication: DIABETIC NEUROPATHY
     Route: 048
  2. BUMETANIDE [Concomitant]
     Dosage: DAILY DOSE:2MG
  3. PERINDOPRIL [Concomitant]
     Dosage: DAILY DOSE:4MG
  4. METOPROLOL SUCCINATE [Concomitant]
     Dosage: DAILY DOSE:25MG
  5. DIGOXIN [Concomitant]
     Dosage: DAILY DOSE:.125MG
  6. WARFARIN SODIUM [Concomitant]
  7. PRAVASTATIN [Concomitant]
  8. INSULIN [Concomitant]
  9. METFORMIN HCL [Concomitant]

REACTIONS (1)
  - CARDIAC FAILURE [None]
